FAERS Safety Report 5201609-8 (Version None)
Quarter: 2006Q4

REPORT INFORMATION
  Report Type: 
  Country: None (occurrence: None)
  Receive Date: 20061006
  Receipt Date: 20060403
  Transmission Date: 20070319
  Serious: Yes (Other)
  Sender: FDA-Public Use
  Company Number: 200610648BWH

PATIENT
  Age: 43 Year
  Sex: Male

DRUGS (2)
  1. CIPRO [Suspect]
     Indication: MALAISE
     Dosage: 250 MG, ORAL
     Route: 048
  2. CIPRO [Suspect]
     Indication: PHARYNGOLARYNGEAL PAIN
     Dosage: 250 MG, ORAL
     Route: 048

REACTIONS (4)
  - ABNORMAL BEHAVIOUR [None]
  - AGITATION [None]
  - AMNESIA [None]
  - THINKING ABNORMAL [None]
